FAERS Safety Report 21768672 (Version 1)
Quarter: 2022Q4

REPORT INFORMATION
  Report Type: Spontaneous
  Country: US (occurrence: None)
  Receive Date: 20221222
  Receipt Date: 20221222
  Transmission Date: 20230112
  Serious: Yes (Hospitalization)
  Sender: FDA-Public Use
  Company Number: None

PATIENT
  Sex: Male
  Weight: 57.3 kg

DRUGS (4)
  1. CISPLATIN [Suspect]
     Active Substance: CISPLATIN
  2. FILGRASTIM [Concomitant]
     Active Substance: FILGRASTIM
  3. IFOSFAMIDE [Concomitant]
     Active Substance: IFOSFAMIDE
  4. TAXOL [Concomitant]
     Active Substance: PACLITAXEL

REACTIONS (3)
  - Haemodynamic instability [None]
  - Blood pressure systolic decreased [None]
  - Heart rate increased [None]

NARRATIVE: CASE EVENT DATE: 20221217
